FAERS Safety Report 9722976 (Version 1)
Quarter: 2013Q4

REPORT INFORMATION
  Report Type: Spontaneous
  Country: US (occurrence: None)
  Receive Date: 20131127
  Receipt Date: 20131127
  Transmission Date: 20140711
  Serious: Yes (Disabling)
  Sender: FDA-Public Use
  Company Number: None

PATIENT
  Age: 62 Year
  Sex: Female
  Weight: 61.24 kg

DRUGS (1)
  1. LEVOFLOXACIN [Suspect]
     Indication: URINARY TRACT INFECTION
     Route: 048
     Dates: start: 20130904, end: 20130914

REACTIONS (5)
  - Myalgia [None]
  - Arthralgia [None]
  - Pain in extremity [None]
  - Injury [None]
  - Spondylolisthesis [None]
